FAERS Safety Report 10238217 (Version 5)
Quarter: 2015Q1

REPORT INFORMATION
  Report Type: Spontaneous
  Country: US (occurrence: US)
  Receive Date: 20140616
  Receipt Date: 20150114
  Transmission Date: 20150720
  Serious: Yes (Other)
  Sender: FDA-Public Use
  Company Number: US-JNJFOC-20140421044

PATIENT
  Sex: Male

DRUGS (1)
  1. RISPERDAL [Suspect]
     Active Substance: RISPERIDONE
     Indication: ANGER
     Route: 048
     Dates: start: 2006, end: 2010

REACTIONS (5)
  - Gynaecomastia [Unknown]
  - Obesity [Unknown]
  - Suicidal ideation [Unknown]
  - Emotional disorder [Unknown]
  - Depression [Unknown]
